FAERS Safety Report 5345324-9 (Version None)
Quarter: 2007Q2

REPORT INFORMATION
  Report Type: 
  Country: None (occurrence: None)
  Receive Date: 20070601
  Receipt Date: 20070517
  Transmission Date: 20071010
  Serious: Yes (Other)
  Sender: FDA-Public Use
  Company Number: CAR_00114_2007

PATIENT
  Sex: Female
  Weight: 130.6359 kg

DRUGS (2)
  1. DICLOFENAC SODIUM [Suspect]
     Indication: BACK PAIN
     Dosage: 75 MG BID ORAL
     Route: 048
     Dates: start: 20041101
  2. ALBUTEROL [Concomitant]

REACTIONS (9)
  - ALOPECIA [None]
  - DECREASED APPETITE [None]
  - DEPRESSION [None]
  - DRUG INEFFECTIVE [None]
  - DRY SKIN [None]
  - FATIGUE [None]
  - SKIN LESION [None]
  - WEIGHT INCREASED [None]
  - WHEEZING [None]
